FAERS Safety Report 7768299-1 (Version None)
Quarter: 2011Q3

REPORT INFORMATION
  Report Type: 
  Country: None (occurrence: None)
  Receive Date: 20110922
  Receipt Date: 20110224
  Transmission Date: 20111222
  Serious: No
  Sender: FDA-Public Use
  Company Number: US-ASTRAZENECA-2011SE10667

PATIENT
  Age: 40 Year
  Sex: Female
  Weight: 90.7 kg

DRUGS (4)
  1. WELLBUTRIN XL [Concomitant]
  2. SEROQUEL [Suspect]
     Route: 048
     Dates: start: 20110101
  3. NEURONTIN [Concomitant]
  4. SEROQUEL [Suspect]
     Indication: BIPOLAR DISORDER
     Route: 048
     Dates: start: 20060101, end: 20110101

REACTIONS (3)
  - TACHYPHRENIA [None]
  - NASAL CONGESTION [None]
  - INSOMNIA [None]
